FAERS Safety Report 22195072 (Version 2)
Quarter: 2023Q4

REPORT INFORMATION
  Report Type: Spontaneous
  Country: SE (occurrence: SE)
  Receive Date: 20230411
  Receipt Date: 20231204
  Transmission Date: 20240110
  Serious: Yes (Death)
  Sender: FDA-Public Use
  Company Number: None

PATIENT
  Age: 72 Year
  Sex: Female

DRUGS (6)
  1. RYBREVANT [Suspect]
     Active Substance: AMIVANTAMAB-VMJW
     Indication: Lung adenocarcinoma
     Dosage: THERAPY END DATE : 01/FEB/2023
     Route: 042
     Dates: start: 20221213
  2. ACETAMINOPHEN [Concomitant]
     Active Substance: ACETAMINOPHEN
     Dosage: 1-2 X 4 VID BEHOV
     Route: 065
     Dates: start: 20221019
  3. GABAPENTIN [Concomitant]
     Active Substance: GABAPENTIN
     Route: 065
  4. FUROSEMIDE [Concomitant]
     Active Substance: FUROSEMIDE
     Dosage: THERAPY END DATE: /FEB/2023
     Route: 065
     Dates: start: 20220225
  5. ESOMEPRAZOLE [Concomitant]
     Active Substance: ESOMEPRAZOLE
     Dosage: THERAPY END DATE: /FEB/2023
     Route: 048
     Dates: start: 20180227
  6. ACETAMINOPHEN [Concomitant]
     Active Substance: ACETAMINOPHEN
     Dosage: 1-2X4 IF NEEDED; THERAPY END DATE: /FEB/2023
     Dates: start: 20221019

REACTIONS (2)
  - Respiratory failure [Fatal]
  - Pneumonitis [Fatal]

NARRATIVE: CASE EVENT DATE: 20230201
